FAERS Safety Report 21088502 (Version 1)
Quarter: 2022Q3

REPORT INFORMATION
  Report Type: Report from Study
  Country: CO (occurrence: CO)
  Receive Date: 20220715
  Receipt Date: 20220715
  Transmission Date: 20221026
  Serious: Yes (Life-Threatening, Other)
  Sender: FDA-Public Use
  Company Number: CO-TAKEDA-2020TUS061297

PATIENT
  Age: 26 Year
  Sex: Female

DRUGS (4)
  1. HUMAN IMMUNOGLOBULIN G\HYALURONIDASE RECOMBINANT HUMAN [Suspect]
     Active Substance: HUMAN IMMUNOGLOBULIN G\HYALURONIDASE RECOMBINANT HUMAN
     Indication: Hypogammaglobulinaemia
     Dosage: 10G/100ML
     Route: 058
     Dates: start: 20200902
  2. HUMAN IMMUNOGLOBULIN G\HYALURONIDASE RECOMBINANT HUMAN [Suspect]
     Active Substance: HUMAN IMMUNOGLOBULIN G\HYALURONIDASE RECOMBINANT HUMAN
     Dosage: 50 GRAM, MONTHLY
     Route: 058
     Dates: start: 20200903
  3. HUMAN IMMUNOGLOBULIN G [Suspect]
     Active Substance: HUMAN IMMUNOGLOBULIN G
     Indication: Product used for unknown indication
     Dosage: UNK
     Route: 042
     Dates: start: 201906, end: 201909
  4. Covid-19 vaccine [Concomitant]
     Dosage: 2 DOSAGE FORM
     Route: 065

REACTIONS (8)
  - Laryngeal oedema [Unknown]
  - Asymptomatic COVID-19 [Recovered/Resolved]
  - Pyrexia [Unknown]
  - Malaise [Unknown]
  - Throat irritation [Unknown]
  - Palpitations [Unknown]
  - Dizziness [Unknown]
  - Pharyngeal erythema [Unknown]

NARRATIVE: CASE EVENT DATE: 20201222
